FAERS Safety Report 6189362-5 (Version None)
Quarter: 2009Q2

REPORT INFORMATION
  Report Type: 
  Country: None (occurrence: None)
  Receive Date: 20090512
  Receipt Date: 20090424
  Transmission Date: 20091009
  Serious: Yes (Other)
  Sender: FDA-Public Use
  Company Number: 20090127

PATIENT
  Age: 61 Year
  Sex: Female

DRUGS (1)
  1. VENOFER [Suspect]
     Indication: ANAEMIA
     Dosage: 500 MG IN 100 ML NS, INTRAVENOUS
     Route: 042
     Dates: start: 20090410, end: 20090410

REACTIONS (9)
  - FEELING HOT [None]
  - HYPOTENSION [None]
  - INJECTION SITE PAIN [None]
  - JOINT STIFFNESS [None]
  - LOSS OF CONSCIOUSNESS [None]
  - MUSCULOSKELETAL STIFFNESS [None]
  - NAUSEA [None]
  - SKIN DISCOLOURATION [None]
  - SYNCOPE [None]
